FAERS Safety Report 16866447 (Version 12)
Quarter: 2022Q4

REPORT INFORMATION
  Report Type: Spontaneous
  Country: BR (occurrence: BR)
  Receive Date: 20190930
  Receipt Date: 20221018
  Transmission Date: 20230113
  Serious: Yes (Hospitalization, Other)
  Sender: FDA-Public Use
  Company Number: BR-GLAXOSMITHKLINE-BR2016GSK138459

PATIENT

DRUGS (6)
  1. BENLYSTA [Suspect]
     Active Substance: BELIMUMAB
     Indication: Systemic lupus erythematosus
     Dosage: 1000 MG
     Route: 042
     Dates: start: 20160817
  2. BENLYSTA [Suspect]
     Active Substance: BELIMUMAB
     Dosage: 1100 MG
  3. BENLYSTA [Suspect]
     Active Substance: BELIMUMAB
     Dosage: 120 MG
     Dates: start: 20160817
  4. AZATHIOPRINE [Concomitant]
     Active Substance: AZATHIOPRINE
     Indication: Product used for unknown indication
     Dosage: UNK
  5. HYDROXYCHLOROQUINE SULFATE [Concomitant]
     Active Substance: HYDROXYCHLOROQUINE SULFATE
     Indication: Product used for unknown indication
     Dosage: UNK
  6. METHOTREXATE [Concomitant]
     Active Substance: METHOTREXATE
     Indication: Product used for unknown indication
     Dosage: UNK

REACTIONS (28)
  - Vasculitis [Recovered/Resolved]
  - Hepatitis [Unknown]
  - Extremity necrosis [Unknown]
  - Toe amputation [Unknown]
  - Renal disorder [Unknown]
  - Swelling [Recovered/Resolved]
  - Arthralgia [Recovered/Resolved]
  - Weight increased [Recovered/Resolved]
  - Urinary tract infection [Recovered/Resolved]
  - Hypersensitivity [Recovered/Resolved]
  - Pulpitis dental [Recovered/Resolved]
  - Endodontic procedure [Unknown]
  - Weight decreased [Recovered/Resolved]
  - Localised infection [Unknown]
  - Inflammation [Unknown]
  - Loose tooth [Unknown]
  - Teeth brittle [Unknown]
  - Depression [Unknown]
  - Anxiety [Unknown]
  - Blood cholesterol increased [Unknown]
  - Dizziness [Unknown]
  - Fatigue [Unknown]
  - Treatment noncompliance [Unknown]
  - Underdose [Unknown]
  - Product availability issue [Unknown]
  - Product dose omission issue [Recovered/Resolved]
  - Circumstance or information capable of leading to medication error [Recovered/Resolved]
  - Inappropriate schedule of product administration [Recovered/Resolved]
